FAERS Safety Report 7889957-4 (Version None)
Quarter: 2011Q4

REPORT INFORMATION
  Report Type: 
  Country: None (occurrence: None)
  Receive Date: 20111103
  Receipt Date: 20111025
  Transmission Date: 20120403
  Serious: Yes (Hospitalization)
  Sender: FDA-Public Use
  Company Number: JP-B.I. PHARMACEUTICALS,INC./RIDGEFIELD-2011-BP-24263NB

PATIENT
  Age: 82 Year
  Sex: Male

DRUGS (4)
  1. PRADAXA [Suspect]
     Indication: ATRIAL FIBRILLATION
     Dosage: 300 MG
     Route: 048
     Dates: start: 20110326, end: 20110830
  2. PRADAXA [Suspect]
     Dosage: 150 MG
     Route: 048
     Dates: start: 20110902, end: 20110904
  3. PRADAXA [Suspect]
     Dosage: 220 MG
     Route: 048
     Dates: start: 20110830, end: 20110902
  4. DIGOXIN [Concomitant]
     Route: 065

REACTIONS (1)
  - PLATELET COUNT DECREASED [None]
